FAERS Safety Report 4751595-X (Version None)
Quarter: 2005Q3

REPORT INFORMATION
  Report Type: 
  Country: None (occurrence: None)
  Receive Date: 20050824
  Receipt Date: 20050422
  Transmission Date: 20060218
  Serious: Yes (Hospitalization, Disabling)
  Sender: FDA-Public Use
  Company Number: PHHO2005US06805

PATIENT
  Age: 63 Year
  Sex: Male
  Weight: 75 kg

DRUGS (2)
  1. RAD001 [Suspect]
     Indication: CHEMOTHERAPY MULTIPLE AGENTS SYSTEMIC
     Dosage: 5 MG, QD
     Route: 048
     Dates: start: 20050302, end: 20050412
  2. GLEEVEC [Suspect]
     Indication: CHEMOTHERAPY MULTIPLE AGENTS SYSTEMIC
     Dosage: 600 MG, QD
     Dates: end: 20050417

REACTIONS (9)
  - COUGH [None]
  - DRUG INTERACTION POTENTIATION [None]
  - DYSPNOEA [None]
  - HYPOXIA [None]
  - NAUSEA [None]
  - PERFORMANCE STATUS DECREASED [None]
  - PLEURAL EFFUSION [None]
  - PNEUMONITIS [None]
  - PULMONARY FIBROSIS [None]
